FAERS Safety Report 9411870 (Version 1)
Quarter: 2013Q3

REPORT INFORMATION
  Report Type: Spontaneous
  Country: FR (occurrence: FR)
  Receive Date: 20130722
  Receipt Date: 20130722
  Transmission Date: 20140515
  Serious: Yes (Other)
  Sender: FDA-Public Use
  Company Number: PHHY2013FR075537

PATIENT
  Age: 75 Year
  Sex: Male

DRUGS (2)
  1. VALSARTAN [Suspect]
  2. HARPAGOSIDE [Interacting]
     Indication: ARTHRALGIA

REACTIONS (2)
  - Renal failure [Recovered/Resolved]
  - Drug interaction [Unknown]
